FAERS Safety Report 16005671 (Version 1)
Quarter: 2019Q1

REPORT INFORMATION
  Report Type: Spontaneous
  Country: SE (occurrence: SE)
  Receive Date: 20190226
  Receipt Date: 20190226
  Transmission Date: 20190418
  Serious: Yes (Disabling)
  Sender: FDA-Public Use
  Company Number: SE-TEVA-2019-SE-1015191

PATIENT
  Age: 69 Year
  Sex: Female

DRUGS (1)
  1. SIMVASTATIN. [Suspect]
     Active Substance: SIMVASTATIN
     Indication: LIPIDS INCREASED
     Dosage: 40 MILLIGRAM DAILY;
     Dates: start: 201010, end: 201401

REACTIONS (4)
  - Loss of consciousness [Recovered/Resolved with Sequelae]
  - Amnesia [Recovered/Resolved with Sequelae]
  - Disorientation [Recovered/Resolved with Sequelae]
  - Memory impairment [Recovered/Resolved with Sequelae]

NARRATIVE: CASE EVENT DATE: 2012
